FAERS Safety Report 8349378-7 (Version None)
Quarter: 2012Q2

REPORT INFORMATION
  Report Type: 
  Country: None (occurrence: None)
  Receive Date: 20120510
  Receipt Date: 20120430
  Transmission Date: 20120825
  Serious: Yes (Other)
  Sender: FDA-Public Use
  Company Number: CA-JNJFOC-20120501955

PATIENT
  Sex: Female
  Weight: 65 kg

DRUGS (2)
  1. REMICADE [Suspect]
     Indication: PSORIATIC ARTHROPATHY
     Route: 042
     Dates: start: 20060101
  2. REMICADE [Suspect]
     Indication: AUTOIMMUNE ARTHRITIS
     Route: 042
     Dates: start: 20060101

REACTIONS (2)
  - ARTHRITIS [None]
  - MOBILITY DECREASED [None]
